FAERS Safety Report 7440839-1 (Version None)
Quarter: 2011Q2

REPORT INFORMATION
  Report Type: 
  Country: None (occurrence: None)
  Receive Date: 20110427
  Receipt Date: 20110419
  Transmission Date: 20111010
  Serious: Yes (Hospitalization, Other)
  Sender: FDA-Public Use
  Company Number: US-PFIZER INC-2011086158

PATIENT
  Age: 39 Year
  Sex: Male
  Weight: 128 kg

DRUGS (2)
  1. IBUPROFEN [Suspect]
     Indication: PAIN IN JAW
     Dosage: 2,400 MG DURING PREVIOUS 8HOUR PERIOD
  2. ANBESOL [Suspect]
     Indication: PAIN IN JAW
     Dosage: APPROX 1.5 TUBES WITHIN PRECEDING 2 HOURS

REACTIONS (2)
  - OVERDOSE [None]
  - METHAEMOGLOBINAEMIA [None]
